FAERS Safety Report 13366649 (Version 3)
Quarter: 2017Q2

REPORT INFORMATION
  Report Type: Spontaneous
  Country: US (occurrence: US)
  Receive Date: 20170323
  Receipt Date: 20170512
  Transmission Date: 20170830
  Serious: Yes (Hospitalization, Other)
  Sender: FDA-Public Use
  Company Number: US-MALLINCKRODT-T201701036

PATIENT
  Age: 33 Year
  Sex: Male

DRUGS (15)
  1. TOPAMAX [Concomitant]
     Active Substance: TOPIRAMATE
     Dosage: TAB 100 MG
  2. ADCIRCA [Concomitant]
     Active Substance: TADALAFIL
     Dosage: TAB 20 MG
  3. FUROSEMIDE. [Concomitant]
     Active Substance: FUROSEMIDE
     Dosage: TAB 40 MG
  4. IBUPROFEN. [Concomitant]
     Active Substance: IBUPROFEN
     Dosage: TAB 800 MG
  5. ZOLOFT [Concomitant]
     Active Substance: SERTRALINE HYDROCHLORIDE
     Dosage: TAB 25 MG
  6. KLOR-CON [Concomitant]
     Active Substance: POTASSIUM CHLORIDE
     Dosage: POW 20 MEQ
  7. ACETAZOLAMIDE. [Concomitant]
     Active Substance: ACETAZOLAMIDE
     Indication: PRODUCT USED FOR UNKNOWN INDICATION
     Dosage: UNK
     Route: 065
  8. ADVAIR HFA [Concomitant]
     Active Substance: FLUTICASONE PROPIONATE\SALMETEROL XINAFOATE
  9. H.P. ACTHAR [Suspect]
     Active Substance: CORTICOTROPIN
     Indication: SARCOIDOSIS
     Dosage: 80 UNITS TWICE WEEKLY
     Route: 058
  10. H.P. ACTHAR [Suspect]
     Active Substance: CORTICOTROPIN
     Indication: SARCOIDOSIS
  11. CLONAZEPAM. [Concomitant]
     Active Substance: CLONAZEPAM
     Dosage: TAB 0.5 MG
  12. PREDNISONE. [Concomitant]
     Active Substance: PREDNISONE
     Dosage: TAB 10 MG
  13. H.P. ACTHAR [Suspect]
     Active Substance: CORTICOTROPIN
     Indication: RESPIRATORY DISORDER
     Dosage: 80 UNITS TWICE WEEKLY
     Route: 058
     Dates: start: 20150911
  14. AMLODIPINE [Concomitant]
     Active Substance: AMLODIPINE BESYLATE
     Dosage: TAB 10 MG
  15. LETAIRIS [Concomitant]
     Active Substance: AMBRISENTAN
     Dosage: TAB 10 MG

REACTIONS (11)
  - Dizziness [Not Recovered/Not Resolved]
  - Off label use [Unknown]
  - Cyst [Not Recovered/Not Resolved]
  - Cough [Recovering/Resolving]
  - Injection site haemorrhage [Not Recovered/Not Resolved]
  - Dyspnoea [Not Recovered/Not Resolved]
  - Fatigue [Not Recovered/Not Resolved]
  - Pulmonary hypertension [Not Recovered/Not Resolved]
  - Oxygen saturation decreased [Not Recovered/Not Resolved]
  - Weight decreased [Not Recovered/Not Resolved]
  - Headache [Recovering/Resolving]

NARRATIVE: CASE EVENT DATE: 20170427
